FAERS Safety Report 7187187-5 (Version None)
Quarter: 2010Q4

REPORT INFORMATION
  Report Type: 
  Country: None (occurrence: None)
  Receive Date: 20101222
  Receipt Date: 20101220
  Transmission Date: 20110411
  Serious: Yes (Other)
  Sender: FDA-Public Use
  Company Number: US-AMGEN-USASP2010010427

PATIENT

DRUGS (1)
  1. VECTIBIX [Suspect]
     Indication: COLON CANCER
     Dates: start: 20100801

REACTIONS (1)
  - OESOPHAGEAL CARCINOMA [None]
